FAERS Safety Report 6180610-4 (Version None)
Quarter: 2009Q2

REPORT INFORMATION
  Report Type: 
  Country: None (occurrence: None)
  Receive Date: 20090506
  Receipt Date: 20090427
  Transmission Date: 20091009
  Serious: Yes (Hospitalization)
  Sender: FDA-Public Use
  Company Number: US-ELI_LILLY_AND_COMPANY-US200904006211

PATIENT
  Age: 60 Year
  Sex: Female

DRUGS (3)
  1. CYMBALTA [Suspect]
     Indication: DEPRESSION
     Dosage: 30 MG, UNK
     Route: 048
  2. CYMBALTA [Suspect]
     Dosage: 60 MG, UNK
     Route: 048
  3. FENTANYL [Concomitant]
     Indication: PAIN

REACTIONS (4)
  - ANXIETY [None]
  - ASTHENIA [None]
  - DYSPNOEA [None]
  - HYPERVENTILATION [None]
